FAERS Safety Report 22157225 (Version 1)
Quarter: 2023Q1

REPORT INFORMATION
  Report Type: Spontaneous
  Country: US (occurrence: US)
  Receive Date: 20230330
  Receipt Date: 20230330
  Transmission Date: 20230418
  Serious: No
  Sender: FDA-Public Use
  Company Number: US-SA-SAC20230328000920

PATIENT
  Sex: Male
  Weight: 89.26 kg

DRUGS (1)
  1. DUPIXENT [Suspect]
     Active Substance: DUPILUMAB
     Indication: Nasal polyps
     Dosage: 300 MG, QOW
     Route: 065
     Dates: start: 20230124

REACTIONS (4)
  - Musculoskeletal stiffness [Unknown]
  - Gingival pain [Unknown]
  - Dysstasia [Unknown]
  - Arthralgia [Unknown]
